FAERS Safety Report 23827379 (Version 1)
Quarter: 2024Q2

REPORT INFORMATION
  Report Type: Spontaneous
  Country: US (occurrence: US)
  Receive Date: 20240507
  Receipt Date: 20240507
  Transmission Date: 20240716
  Serious: No
  Sender: FDA-Public Use
  Company Number: US-CIPLA LTD.-2023US03927

PATIENT

DRUGS (1)
  1. ALBUTEROL [Suspect]
     Active Substance: ALBUTEROL
     Indication: Product used for unknown indication
     Dosage: 2 PUFF (0.18 MG), UNK
     Route: 065

REACTIONS (3)
  - Asthma [Unknown]
  - Device delivery system issue [Not Recovered/Not Resolved]
  - Product quality issue [Unknown]
